FAERS Safety Report 7366029-9 (Version None)
Quarter: 2011Q1

REPORT INFORMATION
  Report Type: 
  Country: None (occurrence: None)
  Receive Date: 20110225
  Receipt Date: 20110124
  Transmission Date: 20110831
  Serious: No
  Sender: FDA-Public Use
  Company Number: 322156

PATIENT
  Age: 69 Year
  Sex: Female

DRUGS (5)
  1. PRANDIN /01393601/ (REPAGLINIDE, REPAGLINIDE) [Concomitant]
  2. METFORMIN HCL [Concomitant]
  3. VICTOZA [Suspect]
     Indication: TYPE 2 DIABETES MELLITUS
     Dosage: 0.6 MG, QD, SUBCUTANEOUS, 1.2 MG, QD, SUBCUTANEOUS
     Route: 058
     Dates: start: 20110118, end: 20110125
  4. ACTOS [Concomitant]
  5. GLIPIZIDE [Concomitant]

REACTIONS (2)
  - DECREASED APPETITE [None]
  - BLOOD GLUCOSE DECREASED [None]
